FAERS Safety Report 9834892 (Version 1)
Quarter: 2014Q1

REPORT INFORMATION
  Report Type: Spontaneous
  Country: CA (occurrence: CA)
  Receive Date: 20140122
  Receipt Date: 20140122
  Transmission Date: 20141002
  Serious: Yes (Death)
  Sender: FDA-Public Use
  Company Number: CA-GLAXOSMITHKLINE-A1057350A

PATIENT
  Age: 27 Year
  Sex: Female
  Weight: 60 kg

DRUGS (9)
  1. FLOVENT [Suspect]
     Indication: PRODUCT USED FOR UNKNOWN INDICATION
     Route: 065
  2. VALACYCLOVIR [Suspect]
     Indication: PRODUCT USED FOR UNKNOWN INDICATION
     Route: 065
  3. AVIANE [Suspect]
     Indication: PRODUCT USED FOR UNKNOWN INDICATION
     Route: 065
  4. CHAMPIX [Suspect]
     Indication: PRODUCT USED FOR UNKNOWN INDICATION
     Dosage: 1MG UNKNOWN
     Route: 065
  5. CITALOPRAM [Suspect]
     Indication: PRODUCT USED FOR UNKNOWN INDICATION
     Dosage: 10MG UNKNOWN
     Route: 065
  6. FENTANYL [Suspect]
     Indication: PRODUCT USED FOR UNKNOWN INDICATION
     Dosage: 25MCG UNKNOWN
     Route: 065
  7. NAPROXEN [Suspect]
     Indication: PRODUCT USED FOR UNKNOWN INDICATION
     Dosage: 500MG UNKNOWN
     Route: 065
  8. QUETIAPINE [Suspect]
     Indication: PRODUCT USED FOR UNKNOWN INDICATION
     Dosage: 25MG UNKNOWN
     Route: 065
  9. ZOPICLONE [Suspect]
     Indication: PRODUCT USED FOR UNKNOWN INDICATION
     Dosage: 7.5MG UNKNOWN
     Route: 065

REACTIONS (5)
  - Death [Fatal]
  - Alcohol poisoning [Unknown]
  - Unresponsive to stimuli [Unknown]
  - Alcohol interaction [Unknown]
  - Toxicity to various agents [Unknown]
